FAERS Safety Report 24702823 (Version 1)
Quarter: 2024Q4

REPORT INFORMATION
  Report Type: Spontaneous
  Country: ES (occurrence: ES)
  Receive Date: 20241205
  Receipt Date: 20241205
  Transmission Date: 20250115
  Serious: Yes (Hospitalization, Other)
  Sender: MYLAN
  Company Number: None

PATIENT
  Age: 35 Year
  Sex: Male

DRUGS (4)
  1. ESTRADIOL [Suspect]
     Active Substance: ESTRADIOL
     Indication: Feminisation acquired
     Dosage: 100 MICROGRAM, QD (DAILY DOSE 100 G)
     Route: 062
     Dates: start: 2012
  2. ESTRADIOL [Suspect]
     Active Substance: ESTRADIOL
     Indication: Transgender hormonal therapy
  3. CYPROTERONE ACETATE [Suspect]
     Active Substance: CYPROTERONE ACETATE
     Indication: Feminisation acquired
     Dosage: 50 MILLIGRAM, BID (100 MILLIGRAM, QD)
     Route: 065
     Dates: start: 2012
  4. CYPROTERONE ACETATE [Suspect]
     Active Substance: CYPROTERONE ACETATE
     Indication: Transgender hormonal therapy

REACTIONS (5)
  - Optic atrophy [Unknown]
  - Meningioma benign [Recovered/Resolved]
  - Headache [Recovering/Resolving]
  - Visual impairment [Recovering/Resolving]
  - Medication error [Unknown]

NARRATIVE: CASE EVENT DATE: 20120101
